FAERS Safety Report 6754749-6 (Version None)
Quarter: 2010Q2

REPORT INFORMATION
  Report Type: 
  Country: None (occurrence: None)
  Receive Date: 20100527
  Receipt Date: 20100520
  Transmission Date: 20101027
  Serious: Yes (Hospitalization, Other)
  Sender: FDA-Public Use
  Company Number: 2010SP028600

PATIENT
  Age: 22 Year
  Sex: Female
  Weight: 55.8 kg

DRUGS (1)
  1. DESOGESTREL AND ETHINYL ESTRADIOL [Suspect]
     Indication: ORAL CONTRACEPTION
     Dosage: PO
     Route: 048
     Dates: start: 20090301, end: 20100119

REACTIONS (1)
  - OVARIAN CYST RUPTURED [None]
